FAERS Safety Report 14368467 (Version 2)
Quarter: 2018Q1

REPORT INFORMATION
  Report Type: Spontaneous
  Country: US (occurrence: US)
  Receive Date: 20180109
  Receipt Date: 20180126
  Transmission Date: 20180509
  Serious: No
  Sender: FDA-Public Use
  Company Number: US-GILEAD-2018-0314589

PATIENT
  Sex: Female
  Weight: 57.14 kg

DRUGS (2)
  1. IRON [Concomitant]
     Active Substance: IRON
     Dosage: OFF AND ON
  2. EPCLUSA [Suspect]
     Active Substance: SOFOSBUVIR\VELPATASVIR
     Indication: HEPATITIS C
     Dosage: 1 DF, UNK
     Route: 048
     Dates: start: 20171008, end: 20180107

REACTIONS (3)
  - Abortion induced [Recovered/Resolved]
  - Treatment noncompliance [Recovered/Resolved]
  - Maternal exposure during pregnancy [Recovered/Resolved]
